FAERS Safety Report 9015662 (Version 6)
Quarter: 2014Q3

REPORT INFORMATION
  Report Type: Report from Study
  Country: BR (occurrence: BR)
  Receive Date: 20130115
  Receipt Date: 20140716
  Transmission Date: 20150326
  Serious: Yes (Hospitalization, Other)
  Sender: FDA-Public Use
  Company Number: BR-ROCHE-724021

PATIENT
  Age: 53 Year
  Sex: Female
  Weight: 73 kg

DRUGS (10)
  1. PLASIL [Concomitant]
     Active Substance: METOCLOPRAMIDE HYDROCHLORIDE
     Route: 065
  2. LEXATIN (BROMAZEPAM) [Concomitant]
  3. PRELONE [Concomitant]
     Active Substance: PREDNISOLONE
     Route: 065
  4. MABTHERA [Suspect]
     Active Substance: RITUXIMAB
     Route: 042
  5. MABTHERA [Suspect]
     Active Substance: RITUXIMAB
     Route: 065
  6. METHOTREXATE [Concomitant]
     Active Substance: METHOTREXATE
     Dosage: DRUG REPORTED AS LEXATO. DOSE REPORTED AS 0.5
     Route: 065
  7. MABTHERA [Suspect]
     Active Substance: RITUXIMAB
     Indication: RHEUMATOID ARTHRITIS
     Dosage: DOSE: 500 MG/ 50 ML; OTHER INDICATION: LUPUS, LAST DOSE ON: 03/DEC/2013
     Route: 042
     Dates: start: 20100501, end: 20100528
  8. CIMETIDINA [Concomitant]
     Route: 065
  9. PREDNISONE. [Concomitant]
     Active Substance: PREDNISONE
     Route: 065
  10. PAMELOR [Concomitant]
     Active Substance: NORTRIPTYLINE HYDROCHLORIDE
     Indication: PREMEDICATION
     Route: 065

REACTIONS (34)
  - Pain in extremity [Not Recovered/Not Resolved]
  - Pain [Recovered/Resolved]
  - Dyspnoea [Not Recovered/Not Resolved]
  - Musculoskeletal stiffness [Unknown]
  - Depression [Recovered/Resolved]
  - Peripheral swelling [Unknown]
  - Nausea [Recovered/Resolved]
  - Tremor [Recovered/Resolved]
  - Limb discomfort [Not Recovered/Not Resolved]
  - Gait disturbance [Not Recovered/Not Resolved]
  - Joint swelling [Unknown]
  - Nervous system disorder [Recovered/Resolved]
  - Urinary tract infection [Unknown]
  - Discomfort [Not Recovered/Not Resolved]
  - Swelling [Not Recovered/Not Resolved]
  - Vomiting [Recovered/Resolved]
  - Fatigue [Unknown]
  - Insomnia [Recovering/Resolving]
  - Blood cholesterol abnormal [Recovering/Resolving]
  - Gastric disorder [Unknown]
  - Anxiety [Not Recovered/Not Resolved]
  - Pain [Not Recovered/Not Resolved]
  - Feeling cold [Recovered/Resolved]
  - Amnesia [Not Recovered/Not Resolved]
  - Inflammation [Unknown]
  - Musculoskeletal pain [Not Recovered/Not Resolved]
  - Nerve degeneration [Recovered/Resolved]
  - Cystitis [Recovered/Resolved]
  - Abdominal pain upper [Unknown]
  - Rheumatoid arthritis [Not Recovered/Not Resolved]
  - Joint swelling [Not Recovered/Not Resolved]
  - Bone pain [Not Recovered/Not Resolved]
  - Confusional state [Not Recovered/Not Resolved]
  - Feeling cold [Not Recovered/Not Resolved]

NARRATIVE: CASE EVENT DATE: 201006
